FAERS Safety Report 7491117-6 (Version None)
Quarter: 2011Q2

REPORT INFORMATION
  Report Type: 
  Country: None (occurrence: None)
  Receive Date: 20110519
  Receipt Date: 20110512
  Transmission Date: 20111010
  Serious: Yes (Hospitalization)
  Sender: FDA-Public Use
  Company Number: CA-ROCHE-777057

PATIENT
  Sex: Female
  Weight: 49.9 kg

DRUGS (3)
  1. BEVACIZUMAB [Suspect]
     Dosage: FORM: INFUSION
     Route: 042
     Dates: start: 20100924, end: 20110426
  2. MORPHINE [Concomitant]
  3. OXYGEN [Concomitant]

REACTIONS (16)
  - FALL [None]
  - HAEMOGLOBIN DECREASED [None]
  - EXCORIATION [None]
  - NEUTROPHIL COUNT DECREASED [None]
  - DIARRHOEA [None]
  - ABDOMINAL PAIN [None]
  - WHITE BLOOD CELL COUNT DECREASED [None]
  - HAEMATOCRIT DECREASED [None]
  - NEOPLASM MALIGNANT [None]
  - CONSTIPATION [None]
  - PAIN [None]
  - INFLUENZA [None]
  - HIP FRACTURE [None]
  - RED BLOOD CELL COUNT DECREASED [None]
  - RED CELL DISTRIBUTION WIDTH INCREASED [None]
  - HYPOTENSION [None]
